FAERS Safety Report 5103099-2 (Version None)
Quarter: 2006Q3

REPORT INFORMATION
  Report Type: 
  Country: None (occurrence: None)
  Receive Date: 20060908
  Receipt Date: 20060831
  Transmission Date: 20061208
  Serious: Yes (Death, Hospitalization, Other)
  Sender: FDA-Public Use
  Company Number: 2006AL002616

PATIENT
  Age: 80 Year
  Sex: Male

DRUGS (8)
  1. LISINOPRIL [Suspect]
     Dosage: PO
     Route: 048
     Dates: start: 19990101, end: 20020613
  2. BURINEX A [Concomitant]
  3. DICLOFENAC [Concomitant]
  4. ASPIRIN [Concomitant]
  5. BISOPROLOL FUMARATE [Concomitant]
  6. ACETAMINOPHEN W/ CODEINE [Concomitant]
  7. QUININE SULFATE [Concomitant]
  8. LANSOPRAZOLE [Concomitant]

REACTIONS (6)
  - CARDIAC ARREST [None]
  - DEHYDRATION [None]
  - HAEMODIALYSIS [None]
  - PNEUMONIA [None]
  - RENAL FAILURE [None]
  - VOMITING [None]
